FAERS Safety Report 4693628-5 (Version None)
Quarter: 2005Q2

REPORT INFORMATION
  Report Type: 
  Country: None (occurrence: None)
  Receive Date: 20050615
  Receipt Date: 20050526
  Transmission Date: 20051028
  Serious: Yes (Hospitalization, Other)
  Sender: FDA-Public Use
  Company Number: USA050599095

PATIENT
  Age: 76 Year
  Sex: Female

DRUGS (2)
  1. HUMALOG [Suspect]
     Indication: DIABETES MELLITUS
     Dates: start: 19950101
  2. HUMULIN N [Suspect]
     Indication: DIABETES MELLITUS
     Dosage: 34 U DAY
     Dates: start: 19950101

REACTIONS (6)
  - ARTHRALGIA [None]
  - CONDITION AGGRAVATED [None]
  - GAIT DISTURBANCE [None]
  - HIP FRACTURE [None]
  - OSTEOPOROSIS [None]
  - WRIST FRACTURE [None]
